FAERS Safety Report 23141062 (Version 1)
Quarter: 2023Q4

REPORT INFORMATION
  Report Type: Spontaneous
  Country: US (occurrence: US)
  Receive Date: 20231103
  Receipt Date: 20231103
  Transmission Date: 20240109
  Serious: Yes (Other)
  Sender: FDA-Public Use
  Company Number: US-AMGEN-USASP2023191531

PATIENT
  Age: 80 Year
  Sex: Male

DRUGS (1)
  1. PROLIA [Suspect]
     Active Substance: DENOSUMAB
     Indication: Osteoporosis
     Dosage: UNK UNK, Q6MO
     Route: 065
     Dates: start: 2019

REACTIONS (8)
  - Aortic occlusion [Unknown]
  - Lung carcinoma cell type unspecified recurrent [Unknown]
  - Lumbar radiculopathy [Unknown]
  - Hypersensitivity [Unknown]
  - Peripheral vascular disorder [Unknown]
  - Antinuclear antibody positive [Unknown]
  - Rheumatoid factor increased [Unknown]
  - Muscular weakness [Unknown]

NARRATIVE: CASE EVENT DATE: 20210101
